FAERS Safety Report 17761185 (Version 1)
Quarter: 2020Q2

REPORT INFORMATION
  Report Type: Spontaneous
  Country: US (occurrence: US)
  Receive Date: 20200508
  Receipt Date: 20200508
  Transmission Date: 20200714
  Serious: No
  Sender: FDA-Public Use
  Company Number: None

PATIENT
  Age: 81 Year
  Sex: Female
  Weight: 51.75 kg

DRUGS (22)
  1. CAPECITABINE. [Concomitant]
     Active Substance: CAPECITABINE
  2. ELIQUIS [Concomitant]
     Active Substance: APIXABAN
  3. FASLODEX [Concomitant]
     Active Substance: FULVESTRANT
  4. PERJETA [Concomitant]
     Active Substance: PERTUZUMAB
  5. CAPECITABINE. [Suspect]
     Active Substance: CAPECITABINE
     Indication: BREAST CANCER FEMALE
     Route: 048
     Dates: start: 20200402, end: 20200508
  6. FERROUS SULFATE. [Concomitant]
     Active Substance: FERROUS SULFATE
  7. EZETIMIBE. [Concomitant]
     Active Substance: EZETIMIBE
  8. CLINDAMYCIN. [Concomitant]
     Active Substance: CLINDAMYCIN
  9. MAGNESIUM GLUCONATE [Concomitant]
     Active Substance: MAGNESIUM GLUCONATE
  10. AMIODARONE [Concomitant]
     Active Substance: AMIODARONE
  11. LEVOTHYROXINE. [Concomitant]
     Active Substance: LEVOTHYROXINE
  12. VITAMIN C [Concomitant]
     Active Substance: ASCORBIC ACID
  13. HERCEPTIN [Concomitant]
     Active Substance: TRASTUZUMAB
  14. VITAMIN D [Concomitant]
     Active Substance: VITAMIN D NOS
  15. LETROZOLE. [Concomitant]
     Active Substance: LETROZOLE
  16. SIMVASTATIN. [Concomitant]
     Active Substance: SIMVASTATIN
  17. MELATONIN [Concomitant]
     Active Substance: MELATONIN
  18. CALCIUM 600 [Concomitant]
     Active Substance: CALCIUM
  19. ALPHA LIPOIC ACID [Concomitant]
     Active Substance: .ALPHA.-LIPOIC ACID
  20. TYKERB [Concomitant]
     Active Substance: LAPATINIB DITOSYLATE
  21. XGEVA [Concomitant]
     Active Substance: DENOSUMAB
  22. NOVOLIN N [Concomitant]
     Active Substance: INSULIN HUMAN

REACTIONS (2)
  - Diarrhoea [None]
  - Asthenia [None]

NARRATIVE: CASE EVENT DATE: 20200508
